FAERS Safety Report 6178097-0 (Version None)
Quarter: 2009Q2

REPORT INFORMATION
  Report Type: 
  Country: None (occurrence: None)
  Receive Date: 20090430
  Receipt Date: 20090416
  Transmission Date: 20091009
  Serious: Yes (Hospitalization, Other)
  Sender: FDA-Public Use
  Company Number: ADE2009-0589

PATIENT
  Age: 13 Year
  Sex: Male

DRUGS (3)
  1. RISPERIDONE [Suspect]
     Indication: AGITATION
     Dosage: 0.5MG, QD,
  2. RISPERIDONE [Suspect]
     Indication: INSOMNIA
     Dosage: 0.5MG, QD,
  3. CLONAZEPAM [Concomitant]

REACTIONS (2)
  - NEUROLEPTIC MALIGNANT SYNDROME [None]
  - RENAL CYST [None]
